FAERS Safety Report 9258532 (Version 1)
Quarter: 2013Q2

REPORT INFORMATION
  Report Type: Spontaneous
  Country: US (occurrence: US)
  Receive Date: 20130426
  Receipt Date: 20130426
  Transmission Date: 20140414
  Serious: No
  Sender: FDA-Public Use
  Company Number: US-009507513-1304USA015213

PATIENT
  Age: 17 Year
  Sex: Female

DRUGS (1)
  1. ASMANEX TWISTHALER [Suspect]
     Dosage: 110 MICROGRAM, QD
     Route: 055
     Dates: start: 20130424

REACTIONS (2)
  - Chest discomfort [Recovering/Resolving]
  - Incorrect dose administered [Unknown]
